FAERS Safety Report 6634152-X (Version None)
Quarter: 2010Q1

REPORT INFORMATION
  Report Type: 
  Country: None (occurrence: None)
  Receive Date: 20100315
  Receipt Date: 20100305
  Transmission Date: 20100710
  Serious: Yes (Hospitalization, Disabling)
  Sender: FDA-Public Use
  Company Number: GR-JNJFOC-20100300554

PATIENT
  Sex: Female
  Weight: 96 kg

DRUGS (5)
  1. CAELYX [Suspect]
     Indication: MULTIPLE MYELOMA
     Route: 042
  2. CAELYX [Suspect]
     Route: 042
  3. VELCADE [Suspect]
     Indication: MULTIPLE MYELOMA
     Dosage: DAYS 1,4,8,11 OF CYCLE
     Route: 042
  4. VELCADE [Suspect]
     Dosage: DAYS 1,4,8,11 OF CYCLE
     Route: 042
  5. DEXAMETHASONE [Suspect]
     Indication: MULTIPLE MYELOMA
     Dosage: DAYS 1-4, 9-12, 17-20 OF CYCLE
     Route: 048

REACTIONS (4)
  - MUSCULAR WEAKNESS [None]
  - MYALGIA [None]
  - NEURALGIA [None]
  - NEUROPATHY PERIPHERAL [None]
